FAERS Safety Report 10157208 (Version 1)
Quarter: 2014Q2

REPORT INFORMATION
  Report Type: Spontaneous
  Country: FR (occurrence: FR)
  Receive Date: 20140507
  Receipt Date: 20140507
  Transmission Date: 20141212
  Serious: Yes (Hospitalization)
  Sender: FDA-Public Use
  Company Number: FR-ASTRAZENECA-2014SE29889

PATIENT
  Age: 7895 Day
  Sex: Male
  Weight: 80 kg

DRUGS (9)
  1. XEROQUEL [Suspect]
     Route: 048
     Dates: start: 20140405, end: 20140405
  2. EFFEXOR [Suspect]
     Route: 048
     Dates: end: 20140405
  3. EFFEXOR [Suspect]
     Route: 048
     Dates: start: 20140405, end: 20140405
  4. LEPONEX [Suspect]
     Route: 048
     Dates: start: 20140405, end: 20140405
  5. ZYPREXA [Suspect]
     Route: 048
     Dates: end: 20140405
  6. ZYPREXA [Suspect]
     Route: 048
     Dates: start: 20140405, end: 20140405
  7. TERCIAN [Concomitant]
     Route: 048
  8. LEVOTHYROX [Concomitant]
     Route: 048
  9. DEPAMIDE [Concomitant]
     Route: 048

REACTIONS (7)
  - Intentional overdose [Unknown]
  - Pneumonia aspiration [Recovered/Resolved]
  - Rhabdomyolysis [Unknown]
  - Altered state of consciousness [Unknown]
  - Somnolence [Recovered/Resolved]
  - Blood creatine phosphokinase increased [Recovered/Resolved]
  - Neuroleptic malignant syndrome [Unknown]
